FAERS Safety Report 11515616 (Version 2)
Quarter: 2015Q4

REPORT INFORMATION
  Report Type: Spontaneous
  Country: US (occurrence: US)
  Receive Date: 20150916
  Receipt Date: 20151027
  Transmission Date: 20160304
  Serious: Yes (Hospitalization)
  Sender: FDA-Public Use
  Company Number: US-009507513-1509USA007635

PATIENT
  Age: 79 Year
  Sex: Male

DRUGS (9)
  1. PROSCAR [Suspect]
     Active Substance: FINASTERIDE
     Route: 048
  2. AMIODARONE [Suspect]
     Active Substance: AMIODARONE
  3. LASIX [Suspect]
     Active Substance: FUROSEMIDE
  4. LIPITOR [Suspect]
     Active Substance: ATORVASTATIN CALCIUM
  5. UBIDECARENONE [Suspect]
     Active Substance: UBIDECARENONE
  6. ALLOPURINOL. [Suspect]
     Active Substance: ALLOPURINOL
  7. ELIQUIS [Suspect]
     Active Substance: APIXABAN
     Dosage: 2.5 MG, BID
  8. FLOMAX [Suspect]
     Active Substance: TAMSULOSIN HYDROCHLORIDE
  9. ASPIRIN. [Suspect]
     Active Substance: ASPIRIN

REACTIONS (3)
  - Haemorrhage [Unknown]
  - Blood creatinine abnormal [Unknown]
  - Adverse event [Unknown]
